FAERS Safety Report 19194654 (Version 1)
Quarter: 2021Q2

REPORT INFORMATION
  Report Type: Spontaneous
  Country: TR (occurrence: TR)
  Receive Date: 20210429
  Receipt Date: 20210429
  Transmission Date: 20210717
  Serious: Yes (Other)
  Sender: FDA-Public Use
  Company Number: TR-BAYER-2021-107815

PATIENT
  Age: 35 Year
  Sex: Female

DRUGS (1)
  1. MIRENA [Suspect]
     Active Substance: LEVONORGESTREL
     Indication: HEAVY MENSTRUAL BLEEDING
     Dosage: 20 ?G PER DAY, CONTINUOUSLY
     Route: 015
     Dates: start: 20210305, end: 202103

REACTIONS (3)
  - Device breakage [None]
  - Patient dissatisfaction with device [None]
  - Product quality issue [None]

NARRATIVE: CASE EVENT DATE: 202103
